FAERS Safety Report 8357438-X (Version None)
Quarter: 2012Q2

REPORT INFORMATION
  Report Type: 
  Country: None (occurrence: None)
  Receive Date: 20120514
  Receipt Date: 20120507
  Transmission Date: 20120825
  Serious: Yes (Hospitalization)
  Sender: FDA-Public Use
  Company Number: US-BAYER-2012-008385

PATIENT
  Age: 38 Year
  Sex: Female
  Weight: 83.9 kg

DRUGS (3)
  1. YAZ [Suspect]
     Indication: ACNE
  2. YAZ [Suspect]
     Indication: CONTRACEPTION
     Dosage: UNK
     Dates: start: 20070501, end: 20070701
  3. YAZ [Suspect]
     Indication: OVULATION PAIN

REACTIONS (4)
  - PAIN [None]
  - MENTAL DISORDER [None]
  - DEEP VEIN THROMBOSIS [None]
  - ANXIETY [None]
